FAERS Safety Report 20700761 (Version 1)
Quarter: 2022Q2

REPORT INFORMATION
  Report Type: Spontaneous
  Country: US (occurrence: None)
  Receive Date: 20220411
  Receipt Date: 20220411
  Transmission Date: 20220721
  Serious: No
  Sender: FDA-Public Use
  Company Number: None

PATIENT
  Age: 72 Year
  Sex: Female
  Weight: 77.11 kg

DRUGS (9)
  1. ATORVASTATIN CALCIUM [Suspect]
     Active Substance: ATORVASTATIN CALCIUM
     Indication: Blood triglycerides increased
     Dosage: OTHER QUANTITY : 1 PILL?ONCE A DAY BY MOUTH?
     Route: 048
     Dates: start: 20120418, end: 20220131
  2. LEVOTHYROXINE [Concomitant]
     Active Substance: LEVOTHYROXINE
  3. CALCIUM [Concomitant]
     Active Substance: CALCIUM
  4. VITAMIN A [Concomitant]
  5. VITAMIN E [Concomitant]
     Active Substance: .ALPHA.-TOCOPHEROL
  6. VITAMIN D [Concomitant]
     Active Substance: VITAMIN D NOS
  7. LECITHIN [Concomitant]
  8. NAPROXEN SODIUM [Concomitant]
  9. COENZYME Q10 [Concomitant]
     Active Substance: DIETARY SUPPLEMENT\UBIDECARENONE

REACTIONS (8)
  - Pruritus [None]
  - Skin exfoliation [None]
  - Dry skin [None]
  - Chapped lips [None]
  - Lip pain [None]
  - Lip swelling [None]
  - Cheilitis [None]
  - Lip pruritus [None]
